FAERS Safety Report 6159337-0 (Version None)
Quarter: 2009Q2

REPORT INFORMATION
  Report Type: 
  Country: None (occurrence: None)
  Receive Date: 20090415
  Receipt Date: 20090415
  Transmission Date: 20091009
  Serious: No
  Sender: FDA-Public Use
  Company Number: None

PATIENT
  Sex: Male
  Weight: 78.4 kg

DRUGS (1)
  1. PHENYTOIN SODIUM [Suspect]
     Indication: EPILEPSY
     Dosage: 400MG DAILY PO
     Route: 048
     Dates: start: 20090324, end: 20090408

REACTIONS (7)
  - AGGRESSION [None]
  - ANTICONVULSANT DRUG LEVEL DECREASED [None]
  - BARBITURATES POSITIVE [None]
  - DRUG SCREEN POSITIVE [None]
  - HYPOXIA [None]
  - MENTAL IMPAIRMENT [None]
  - ROAD TRAFFIC ACCIDENT [None]
